FAERS Safety Report 11217428 (Version 1)
Quarter: 2015Q2

REPORT INFORMATION
  Report Type: Spontaneous
  Country: BR (occurrence: BR)
  Receive Date: 20150625
  Receipt Date: 20150625
  Transmission Date: 20150821
  Serious: Yes (Hospitalization, Other)
  Sender: FDA-Public Use
  Company Number: BR-ASTRAZENECA-2015SE61492

PATIENT
  Age: 72 Year
  Sex: Male
  Weight: 66 kg

DRUGS (12)
  1. SELOZOK [Suspect]
     Active Substance: METOPROLOL SUCCINATE
     Indication: HEART RATE DECREASED
     Route: 048
  2. ASA [Concomitant]
     Active Substance: ASPIRIN
  3. SPIRIVA [Concomitant]
     Active Substance: TIOTROPIUM BROMIDE MONOHYDRATE
     Indication: EMPHYSEMA
  4. BUP [Concomitant]
     Active Substance: BUPROPION HYDROCHLORIDE
     Indication: ANXIETY
  5. VENLIFT [Concomitant]
     Active Substance: VENLAFAXINE HYDROCHLORIDE
  6. UNKNOWN [Concomitant]
     Active Substance: UNSPECIFIED INGREDIENT
  7. UNSPECIFIED CORTICOID [Concomitant]
     Active Substance: UNSPECIFIED INGREDIENT
     Indication: EMPHYSEMA
  8. ALENIA [Suspect]
     Active Substance: BUDESONIDE\FORMOTEROL FUMARATE
     Indication: EMPHYSEMA
     Route: 055
  9. CRESTOR [Suspect]
     Active Substance: ROSUVASTATIN CALCIUM
     Route: 048
  10. CORUS [Concomitant]
     Active Substance: LOSARTAN POTASSIUM
  11. MONOCORDIL [Concomitant]
     Active Substance: ISOSORBIDE MONONITRATE
  12. INSULIN [Concomitant]
     Active Substance: INSULIN NOS
     Indication: HYPERGLYCAEMIA

REACTIONS (1)
  - Myocardial infarction [Recovered/Resolved]

NARRATIVE: CASE EVENT DATE: 2015
